FAERS Safety Report 5334500-7 (Version None)
Quarter: 2007Q2

REPORT INFORMATION
  Report Type: 
  Country: None (occurrence: None)
  Receive Date: 20070308
  Receipt Date: 20061212
  Transmission Date: 20071010
  Serious: No
  Sender: FDA-Public Use
  Company Number: 2006-BP-13901BP

PATIENT
  Age: 56 Year
  Sex: Male

DRUGS (7)
  1. SPIRIVA [Suspect]
     Indication: ASTHMA
     Dosage: 18 MCG (18 MCG, 1 IN 1 D), IH
     Route: 055
     Dates: start: 20040101
  2. SPIRIVA [Suspect]
     Indication: RESPIRATORY DISORDER
     Dosage: 18 MCG (18 MCG, 1 IN 1 D), IH
     Route: 055
     Dates: start: 20040101
  3. NORVASC [Concomitant]
  4. COMBIVENT [Concomitant]
  5. SINGULAIR [Concomitant]
  6. ALBUTEROL [Concomitant]
  7. FLOVENT [Concomitant]

REACTIONS (2)
  - DRUG INEFFECTIVE [None]
  - DYSPNOEA [None]
